FAERS Safety Report 10464393 (Version 3)
Quarter: 2014Q4

REPORT INFORMATION
  Report Type: Spontaneous
  Country: PK (occurrence: PK)
  Receive Date: 20140919
  Receipt Date: 20141021
  Transmission Date: 20150528
  Serious: Yes (Death)
  Sender: FDA-Public Use
  Company Number: PK-PFIZER INC-2014257705

PATIENT
  Age: 45 Year
  Sex: Male

DRUGS (1)
  1. SUTENT [Suspect]
     Active Substance: SUNITINIB MALATE
     Dosage: 50 MG, 1X/DAY
     Route: 048
     Dates: start: 20140811, end: 20140901

REACTIONS (3)
  - Asthenia [Unknown]
  - Death [Fatal]
  - Haemoptysis [Unknown]

NARRATIVE: CASE EVENT DATE: 201408
